FAERS Safety Report 7344359-4 (Version None)
Quarter: 2011Q1

REPORT INFORMATION
  Report Type: 
  Country: None (occurrence: None)
  Receive Date: 20110310
  Receipt Date: 20101213
  Transmission Date: 20110831
  Serious: No
  Sender: FDA-Public Use
  Company Number: A0899506A

PATIENT
  Age: 38 Year
  Sex: Female

DRUGS (1)
  1. NICORETTE [Suspect]
     Dates: start: 20100823

REACTIONS (3)
  - TOOTH FRACTURE [None]
  - DRUG ADMINISTRATION ERROR [None]
  - TOOTHACHE [None]
